FAERS Safety Report 12412017 (Version 1)
Quarter: 2016Q2

REPORT INFORMATION
  Report Type: Spontaneous
  Country: US (occurrence: US)
  Receive Date: 20160527
  Receipt Date: 20160527
  Transmission Date: 20160815
  Serious: Yes (Other)
  Sender: FDA-Public Use
  Company Number: US-ROXANE LABORATORIES, INC.-2016-RO-00968RO

PATIENT
  Sex: Female

DRUGS (10)
  1. FISH OIL [Concomitant]
     Active Substance: FISH OIL
     Route: 065
  2. AZELASTINE [Concomitant]
     Active Substance: AZELASTINE
     Route: 065
  3. ALLEGRA [Concomitant]
     Active Substance: FEXOFENADINE HYDROCHLORIDE
     Route: 065
  4. MOVE FREE ULTRA [Concomitant]
     Route: 065
  5. MULTIVITAMINS [Concomitant]
     Active Substance: VITAMINS
     Route: 065
  6. PREDNISONE TABLETS USP, 5MG [Suspect]
     Active Substance: PREDNISONE
     Indication: CORNEAL TRANSPLANT
     Route: 048
     Dates: end: 2015
  7. FLUTICASONE [Concomitant]
     Active Substance: FLUTICASONE\FLUTICASONE PROPIONATE
     Route: 065
  8. GABAPENTIN. [Concomitant]
     Active Substance: GABAPENTIN
     Indication: EPILEPSY
     Route: 065
  9. CEVIMELINE. [Concomitant]
     Active Substance: CEVIMELINE
     Route: 065
  10. CALCIUM [Concomitant]
     Active Substance: CALCIUM
     Route: 065

REACTIONS (6)
  - Swelling [Recovered/Resolved]
  - Candida infection [Not Recovered/Not Resolved]
  - Infection [Not Recovered/Not Resolved]
  - Glaucoma [Not Recovered/Not Resolved]
  - Mood swings [Recovered/Resolved]
  - Weight increased [Recovered/Resolved]
